FAERS Safety Report 14242628 (Version 1)
Quarter: 2017Q4

REPORT INFORMATION
  Report Type: Spontaneous
  Country: JP (occurrence: JP)
  Receive Date: 20171201
  Receipt Date: 20171201
  Transmission Date: 20180321
  Serious: Yes (Other)
  Sender: FDA-Public Use
  Company Number: JP-ROCHE-2029732

PATIENT
  Sex: Female

DRUGS (2)
  1. XELODA [Suspect]
     Active Substance: CAPECITABINE
     Indication: BREAST CANCER
     Dosage: 2 WEEKS ADMINISTRATION FOLLOWED BY 1 WEEK REST
     Route: 048
     Dates: start: 201701
  2. XELODA [Suspect]
     Active Substance: CAPECITABINE
     Indication: BREAST CANCER
     Dosage: 2 WEEKS ADMINISTRATION FOLLOWED BY 1 WEEK REST
     Route: 048
     Dates: start: 2015

REACTIONS (13)
  - Hepatic steatosis [Unknown]
  - Nail pigmentation [Unknown]
  - Bile duct cancer [Unknown]
  - Eye pain [Unknown]
  - Off label use [Unknown]
  - Fracture [Unknown]
  - Dry skin [Unknown]
  - Haemangioma [Unknown]
  - Liver function test increased [Unknown]
  - Blood triglycerides increased [Recovering/Resolving]
  - Hepatocellular carcinoma [Unknown]
  - Lacrimation increased [Unknown]
  - Skin exfoliation [Unknown]

NARRATIVE: CASE EVENT DATE: 2017
